FAERS Safety Report 11535443 (Version 1)
Quarter: 2015Q3

REPORT INFORMATION
  Report Type: Report from Study
  Country: FR (occurrence: FR)
  Receive Date: 20150922
  Receipt Date: 20150922
  Transmission Date: 20151125
  Serious: Yes (Other)
  Sender: FDA-Public Use
  Company Number: FR-ASTELLAS-2015US034123

PATIENT

DRUGS (3)
  1. TACROLIMUS. [Suspect]
     Active Substance: TACROLIMUS
     Indication: NEPHRECTOMY
     Dosage: UNK UNK, UNKNOWN FREQ. (TARGET TROUGH LEVEL OF 4-6 NG/ML)
     Route: 065
  2. MYCOPHENOLATE MOFETIL. [Suspect]
     Active Substance: MYCOPHENOLATE MOFETIL
     Dosage: 500 MG, TWICE DAILY, AFTER TRANSPLANTATION
     Route: 065
  3. MYCOPHENOLATE MOFETIL. [Suspect]
     Active Substance: MYCOPHENOLATE MOFETIL
     Indication: NEPHRECTOMY
     Dosage: 1 G, ONCE DAILY, BEFORE TRANSPLANTATION,
     Route: 065

REACTIONS (2)
  - Post procedural haematoma [Unknown]
  - Off label use [Unknown]
